FAERS Safety Report 9400310 (Version 1)
Quarter: 2013Q3

REPORT INFORMATION
  Report Type: Spontaneous
  Country: US (occurrence: None)
  Receive Date: 20130712
  Receipt Date: 20130712
  Transmission Date: 20140515
  Serious: Yes (Death, Other)
  Sender: FDA-Public Use
  Company Number: None

PATIENT
  Age: 84 Year
  Sex: Female

DRUGS (1)
  1. AVASTIN 1.25 MG GENENTECH [Suspect]
     Indication: AGE-RELATED MACULAR DEGENERATION
     Dosage: 1  EVERY SIX WEEKS  INTRAOCULAR
     Route: 031
     Dates: start: 20120416, end: 20130626

REACTIONS (1)
  - Death [None]
